FAERS Safety Report 6732931-1 (Version None)
Quarter: 2010Q2

REPORT INFORMATION
  Report Type: 
  Country: None (occurrence: None)
  Receive Date: 20100517
  Receipt Date: 20090929
  Transmission Date: 20101027
  Serious: Yes (Hospitalization, Other)
  Sender: FDA-Public Use
  Company Number: AUR-APL-2010-00925

PATIENT
  Age: 49 Year
  Sex: Female
  Weight: 86.1834 kg

DRUGS (9)
  1. METOPROLOL TARTRATE [Suspect]
  2. LIPITOR [Suspect]
     Indication: BLOOD CHOLESTEROL INCREASED
     Dosage: 20MG, DAILY, ORAL
     Route: 048
     Dates: end: 20080501
  3. ZOLOFT [Suspect]
  4. NORVASC [Suspect]
  5. LASIX [Suspect]
  6. K-DUR [Suspect]
  7. PLAVIX [Suspect]
  8. IMDUR [Suspect]
  9. PRAVASTATIN [Suspect]

REACTIONS (12)
  - ARTERIAL OCCLUSIVE DISEASE [None]
  - ARTHRALGIA [None]
  - BLOOD PRESSURE INADEQUATELY CONTROLLED [None]
  - CARDIAC DISORDER [None]
  - DRUG INEFFECTIVE [None]
  - HYPERTENSION [None]
  - IMMUNE SYSTEM DISORDER [None]
  - MYOCARDIAL INFARCTION [None]
  - PERICARDIAL EFFUSION [None]
  - PLEURAL EFFUSION [None]
  - SPINAL OSTEOARTHRITIS [None]
  - TOOTH ABSCESS [None]
